FAERS Safety Report 7609457-6 (Version None)
Quarter: 2011Q3

REPORT INFORMATION
  Report Type: 
  Country: None (occurrence: None)
  Receive Date: 20110714
  Receipt Date: 20110705
  Transmission Date: 20111222
  Serious: Yes (Hospitalization)
  Sender: FDA-Public Use
  Company Number: US-BAYER-2010-001682

PATIENT
  Age: 40 Year
  Sex: Female
  Weight: 58.957 kg

DRUGS (8)
  1. YASMIN [Suspect]
  2. YAZ [Suspect]
     Indication: PREMENSTRUAL SYNDROME
     Dosage: UNK
     Dates: start: 20070101, end: 20100101
  3. TALACEN [Concomitant]
     Dosage: UNK
     Dates: start: 20000101
  4. COMBIVENT [Concomitant]
  5. YAZ [Suspect]
  6. ANTITHROMBOTIC AGENTS [Concomitant]
     Indication: ANTICOAGULANT THERAPY
  7. YASMIN [Suspect]
     Indication: PREMENSTRUAL SYNDROME
     Dosage: UNK
     Dates: start: 20070101, end: 20100101
  8. ANTIMIGRAINE PREPARATIONS [Concomitant]
     Indication: MIGRAINE

REACTIONS (2)
  - PULMONARY EMBOLISM [None]
  - DEPRESSION [None]
